FAERS Safety Report 6584129-8 (Version None)
Quarter: 2010Q1

REPORT INFORMATION
  Report Type: 
  Country: None (occurrence: None)
  Receive Date: 20100216
  Receipt Date: 20100205
  Transmission Date: 20100710
  Serious: Yes (Other)
  Sender: FDA-Public Use
  Company Number: US-JNJFOC-20100202916

PATIENT
  Sex: Female

DRUGS (2)
  1. TYLENOL ARTHRITIS PAIN ER [Suspect]
  2. TYLENOL ARTHRITIS PAIN ER [Suspect]
     Indication: ARTHRALGIA
     Dosage: 1300MG AT BEDTIME EVERY NIGHT AND UNSPECIFIED DOSE WHEN NEEDED

REACTIONS (3)
  - ABDOMINAL PAIN UPPER [None]
  - DIARRHOEA HAEMORRHAGIC [None]
  - PRODUCT QUALITY ISSUE [None]
